FAERS Safety Report 22928745 (Version 4)
Quarter: 2024Q4

REPORT INFORMATION
  Report Type: Spontaneous
  Country: US (occurrence: US)
  Receive Date: 20230911
  Receipt Date: 20241002
  Transmission Date: 20250114
  Serious: No
  Sender: LUPIN
  Company Number: US-LUPIN PHARMACEUTICALS INC.-2023-07532

PATIENT

DRUGS (2)
  1. ALBUTEROL SULFATE [Suspect]
     Active Substance: ALBUTEROL SULFATE
     Indication: Asthma exercise induced
     Dosage: UNK, PRN, 2 PUFFS 20 TO 30 MIN BEFORE EXERCISE OR EVERY 3 TO 4 HOURS AS NEEDED
     Dates: start: 20230821
  2. ALBUTEROL SULFATE [Suspect]
     Active Substance: ALBUTEROL SULFATE
     Indication: Wheezing

REACTIONS (4)
  - Device delivery system issue [Unknown]
  - Device mechanical issue [Unknown]
  - Product preparation error [Unknown]
  - No adverse event [Unknown]
